FAERS Safety Report 14386665 (Version 1)
Quarter: 2018Q1

REPORT INFORMATION
  Report Type: Spontaneous
  Country: US (occurrence: US)
  Receive Date: 20180115
  Receipt Date: 20180115
  Transmission Date: 20180509
  Serious: Yes (Other)
  Sender: FDA-Public Use
  Company Number: US-SA-2017SA101522

PATIENT
  Age: 61 Year
  Sex: Female

DRUGS (6)
  1. ARIMIDEX [Concomitant]
     Active Substance: ANASTROZOLE
     Route: 065
     Dates: start: 20160107
  2. TAXOTERE [Suspect]
     Active Substance: DOCETAXEL
     Indication: BREAST CANCER
     Route: 051
     Dates: start: 20150924, end: 20150924
  3. TAXOTERE [Suspect]
     Active Substance: DOCETAXEL
     Indication: BREAST CANCER
     Route: 051
     Dates: start: 20150611, end: 20150611
  4. HERCEPTIN [Concomitant]
     Active Substance: TRASTUZUMAB
  5. PARAPLATIN [Concomitant]
     Active Substance: CARBOPLATIN
  6. PERTUZUMAB. [Concomitant]
     Active Substance: PERTUZUMAB

REACTIONS (3)
  - Hair texture abnormal [Unknown]
  - Hair colour changes [Unknown]
  - Alopecia [Not Recovered/Not Resolved]

NARRATIVE: CASE EVENT DATE: 20160324
